FAERS Safety Report 19644572 (Version 7)
Quarter: 2021Q4

REPORT INFORMATION
  Report Type: Spontaneous
  Country: US (occurrence: US)
  Receive Date: 20210802
  Receipt Date: 20211116
  Transmission Date: 20220304
  Serious: Yes (Other)
  Sender: FDA-Public Use
  Company Number: US-GLAXOSMITHKLINE-US2021AMR162015

PATIENT
  Sex: Female

DRUGS (1)
  1. ZEJULA [Suspect]
     Active Substance: NIRAPARIB
     Indication: Product used for unknown indication
     Dosage: 200 MG, QD

REACTIONS (11)
  - Malignant neoplasm progression [Unknown]
  - Balance disorder [Unknown]
  - Stomatitis [Not Recovered/Not Resolved]
  - Dry mouth [Unknown]
  - Dyspnoea [Not Recovered/Not Resolved]
  - Fatigue [Not Recovered/Not Resolved]
  - Vomiting [Not Recovered/Not Resolved]
  - Glossitis [Not Recovered/Not Resolved]
  - Computerised tomogram abnormal [Unknown]
  - Adverse drug reaction [Unknown]
  - Product dose omission in error [Unknown]
